FAERS Safety Report 5769624-3 (Version None)
Quarter: 2008Q2

REPORT INFORMATION
  Report Type: 
  Country: None (occurrence: None)
  Receive Date: 20080612
  Receipt Date: 20080429
  Transmission Date: 20081010
  Serious: No
  Sender: FDA-Public Use
  Company Number: US-ABBOTT-08P-163-0445533-00

PATIENT
  Sex: Male
  Weight: 64.468 kg

DRUGS (7)
  1. HUMIRA [Suspect]
     Indication: ANKYLOSING SPONDYLITIS
     Route: 058
     Dates: end: 20080402
  2. HUMIRA [Suspect]
     Indication: RHEUMATOID ARTHRITIS
  3. BACLOFEN [Concomitant]
     Indication: MUSCLE SPASMS
     Dosage: 20-30MILLIGRAMS DAILY
     Route: 048
  4. PREDNISONE TAB [Concomitant]
     Indication: ANKYLOSING SPONDYLITIS
     Route: 048
  5. ACETZOLMIDE [Concomitant]
     Indication: DIURETIC THERAPY
     Route: 048
  6. FOLIC ACID [Concomitant]
     Indication: SUPPLEMENTATION THERAPY
     Route: 048
  7. METHOTREXATE [Concomitant]
     Indication: DRUG USE FOR UNKNOWN INDICATION

REACTIONS (4)
  - BLOOD CREATININE INCREASED [None]
  - BLOOD UREA INCREASED [None]
  - NEPHROLITHIASIS [None]
  - PYREXIA [None]
